FAERS Safety Report 6389080-4 (Version None)
Quarter: 2009Q4

REPORT INFORMATION
  Report Type: 
  Country: None (occurrence: None)
  Receive Date: 20091006
  Receipt Date: 20090928
  Transmission Date: 20100525
  Serious: Yes (Hospitalization)
  Sender: FDA-Public Use
  Company Number: US-BIOGENIDEC-2008BI030158

PATIENT
  Age: 34 Year
  Sex: Female

DRUGS (6)
  1. TYSABRI [Suspect]
     Indication: MULTIPLE SCLEROSIS
     Route: 042
     Dates: start: 20080915, end: 20081114
  2. TYSABRI [Suspect]
     Route: 042
     Dates: start: 20090512
  3. BACLOFEN [Concomitant]
  4. NEURONTIN [Concomitant]
  5. HYDROCODON [Concomitant]
  6. LYRICA [Concomitant]

REACTIONS (12)
  - ABDOMINAL PAIN [None]
  - BACK PAIN [None]
  - BLINDNESS UNILATERAL [None]
  - BONE PAIN [None]
  - CARDIAC NEOPLASM UNSPECIFIED [None]
  - HEADACHE [None]
  - MULTIPLE SCLEROSIS RELAPSE [None]
  - MUSCLE SPASMS [None]
  - NAUSEA [None]
  - SEPSIS [None]
  - URINARY TRACT INFECTION [None]
  - VISUAL IMPAIRMENT [None]
